FAERS Safety Report 18313096 (Version 3)
Quarter: 2020Q4

REPORT INFORMATION
  Report Type: Report from Study
  Country: US (occurrence: US)
  Receive Date: 20200925
  Receipt Date: 20201016
  Transmission Date: 20210113
  Serious: Yes (Other)
  Sender: FDA-Public Use
  Company Number: NVSC2020US261347

PATIENT
  Age: 64 Year
  Sex: Female

DRUGS (2)
  1. MORPHINE [Suspect]
     Active Substance: MORPHINE
     Indication: PRODUCT USED FOR UNKNOWN INDICATION
     Dosage: UNK
     Route: 065
  2. ENTRESTO [Suspect]
     Active Substance: SACUBITRIL\VALSARTAN
     Indication: PRODUCT USED FOR UNKNOWN INDICATION
     Dosage: 50 MG, BID (24 MG OF SACUBITRIL AND 26 MG OF VALSARTAN)
     Route: 048

REACTIONS (8)
  - Hip fracture [Unknown]
  - Weight decreased [Unknown]
  - Fall [Unknown]
  - Dizziness [Unknown]
  - Dysphonia [Unknown]
  - Disorientation [Unknown]
  - Weight gain poor [Unknown]
  - Feeling abnormal [Unknown]

NARRATIVE: CASE EVENT DATE: 20200929
